FAERS Safety Report 12883457 (Version 1)
Quarter: 2016Q4

REPORT INFORMATION
  Report Type: Spontaneous
  Country: US (occurrence: US)
  Receive Date: 20161025
  Receipt Date: 20161025
  Transmission Date: 20170207
  Serious: Yes (Death)
  Sender: FDA-Public Use
  Company Number: US-ACTELION-A-US2016-144034

PATIENT
  Age: 71 Year
  Sex: Female

DRUGS (7)
  1. MIDODRINE [Concomitant]
     Active Substance: MIDODRINE
  2. POTASSIUM CHLORIDE. [Concomitant]
     Active Substance: POTASSIUM CHLORIDE
  3. BUMETANIDE. [Concomitant]
     Active Substance: BUMETANIDE
  4. ASPIRIN. [Concomitant]
     Active Substance: ASPIRIN
  5. OPSUMIT [Suspect]
     Active Substance: MACITENTAN
     Indication: PULMONARY HYPERTENSION
     Dosage: 10 MG, QD
     Route: 048
     Dates: start: 20160429, end: 20160926
  6. DIGOXIN. [Concomitant]
     Active Substance: DIGOXIN
  7. CRESTOR [Concomitant]
     Active Substance: ROSUVASTATIN CALCIUM

REACTIONS (1)
  - Coronary artery disease [Fatal]
